FAERS Safety Report 8097031-X (Version None)
Quarter: 2012Q1

REPORT INFORMATION
  Report Type: 
  Country: None (occurrence: None)
  Receive Date: 20120129
  Receipt Date: 20111206
  Transmission Date: 20120608
  Serious: No
  Sender: FDA-Public Use
  Company Number: US-ABBOTT-11P-163-0880870-00

PATIENT
  Sex: Female
  Weight: 108.51 kg

DRUGS (8)
  1. ASPIRIN [Concomitant]
     Indication: PRODUCT USED FOR UNKNOWN INDICATION
  2. HUMIRA [Suspect]
     Dates: start: 20111206
  3. MULTI-VITAMIN [Concomitant]
     Indication: VITAMIN SUPPLEMENTATION
  4. TALCONEX CREAM [Concomitant]
     Indication: PSORIASIS
  5. QUINAPRIL [Concomitant]
     Indication: HYPERTENSION
  6. EVISTA [Concomitant]
     Indication: OSTEOPOROSIS
  7. HUMIRA [Suspect]
     Indication: PSORIASIS
     Dates: start: 20090301, end: 20090801
  8. HUMIRA [Suspect]
     Dates: start: 20090901, end: 20101201

REACTIONS (1)
  - PSORIASIS [None]
